FAERS Safety Report 7759479-X (Version None)
Quarter: 2011Q3

REPORT INFORMATION
  Report Type: 
  Country: None (occurrence: None)
  Receive Date: 20110919
  Receipt Date: 20110919
  Transmission Date: 20111222
  Serious: Yes (Other)
  Sender: FDA-Public Use
  Company Number: None

PATIENT
  Age: 36 Year
  Sex: Male
  Weight: 74.842 kg

DRUGS (1)
  1. AVELOX [Suspect]
     Indication: BRONCHITIS
     Dosage: 400 MG
     Route: 048
     Dates: start: 20110914, end: 20110914

REACTIONS (11)
  - COGNITIVE DISORDER [None]
  - INAPPROPRIATE AFFECT [None]
  - FATIGUE [None]
  - EMOTIONAL DISORDER [None]
  - DECREASED APPETITE [None]
  - AFFECT LABILITY [None]
  - DIZZINESS [None]
  - CRYING [None]
  - THINKING ABNORMAL [None]
  - DEPRESSED LEVEL OF CONSCIOUSNESS [None]
  - CONFUSIONAL STATE [None]
